FAERS Safety Report 9408781 (Version 2)
Quarter: 2013Q3

REPORT INFORMATION
  Report Type: Spontaneous
  Country: US (occurrence: US)
  Receive Date: 20130719
  Receipt Date: 20130806
  Transmission Date: 20140515
  Serious: Yes (Other)
  Sender: FDA-Public Use
  Company Number: US-ROCHE-1250279

PATIENT
  Age: 86 Year
  Sex: Female

DRUGS (2)
  1. RANIBIZUMAB [Suspect]
     Indication: AGE-RELATED MACULAR DEGENERATION
     Route: 050
  2. AFLIBERCEPT [Concomitant]
     Route: 042

REACTIONS (2)
  - Subretinal fluid [Recovering/Resolving]
  - Drug resistance [Unknown]
